FAERS Safety Report 9301940 (Version 1)
Quarter: 2013Q2

REPORT INFORMATION
  Report Type: Spontaneous
  Country: CA (occurrence: CA)
  Receive Date: 20130521
  Receipt Date: 20130521
  Transmission Date: 20140414
  Serious: Yes (Hospitalization, Other)
  Sender: FDA-Public Use
  Company Number: CA-WATSON-2013-09155

PATIENT
  Age: 40 Year
  Sex: Female

DRUGS (2)
  1. LAMOTRIGINE (UNKNOWN) [Suspect]
     Indication: BIPOLAR DISORDER
     Dosage: 50 MG, DAILY
     Route: 065
  2. LAMOTRIGINE (UNKNOWN) [Suspect]
     Dosage: 25 MG, DAILY
     Route: 065

REACTIONS (4)
  - Acute hepatic failure [Recovered/Resolved]
  - Hepatic encephalopathy [Recovered/Resolved]
  - Hyperthermia [Recovered/Resolved]
  - Rash maculo-papular [Recovered/Resolved]
